FAERS Safety Report 13785985 (Version 2)
Quarter: 2017Q3

REPORT INFORMATION
  Report Type: Spontaneous
  Country: US (occurrence: US)
  Receive Date: 20170725
  Receipt Date: 20170807
  Transmission Date: 20171127
  Serious: Yes (Hospitalization)
  Sender: FDA-Public Use
  Company Number: US-SHENZHEN TECHDOW PHARMACEUTICAL CO. LTD-US-2017TEC0000040

PATIENT
  Age: 59 Year
  Sex: Female

DRUGS (1)
  1. HEPARIN SODIUM INJECTION USP, PRESERVATIVE FREE [Suspect]
     Active Substance: HEPARIN SODIUM
     Indication: PROPHYLAXIS
     Dosage: 5000 IU, TID
     Route: 058

REACTIONS (7)
  - Heparin-induced thrombocytopenia [Unknown]
  - Respiratory failure [Unknown]
  - Pulmonary embolism [Unknown]
  - Renal infarct [Unknown]
  - Deep vein thrombosis [Unknown]
  - Compartment syndrome [Recovered/Resolved]
  - Diplegia [Recovered/Resolved]
